FAERS Safety Report 6760937-5 (Version None)
Quarter: 2010Q2

REPORT INFORMATION
  Report Type: 
  Country: None (occurrence: None)
  Receive Date: 20100604
  Receipt Date: 20100522
  Transmission Date: 20101027
  Serious: Yes (Hospitalization)
  Sender: FDA-Public Use
  Company Number: 2010-1747

PATIENT
  Age: 51 Year
  Sex: Female
  Weight: 51.7 kg

DRUGS (5)
  1. DYSPORT [Suspect]
     Indication: OFF LABEL USE
     Dosage: SINGLE CYCLE
     Dates: start: 20100423, end: 20100423
  2. DYSPORT [Suspect]
     Indication: SKIN WRINKLING
     Dosage: SINGLE CYCLE
     Dates: start: 20100423, end: 20100423
  3. RESTYLANE (HYALURONIC ACID) [Concomitant]
  4. RADIESSE (CALCIUM COMPOUNDS) [Concomitant]
  5. MULTIVITAMIN (MULTIVITAMIN) [Concomitant]

REACTIONS (10)
  - CHEST DISCOMFORT [None]
  - DRY MOUTH [None]
  - DYSPHAGIA [None]
  - DYSPNOEA [None]
  - EYELID PTOSIS [None]
  - FATIGUE [None]
  - FEELING ABNORMAL [None]
  - HEADACHE [None]
  - OFF LABEL USE [None]
  - WEIGHT DECREASED [None]
